FAERS Safety Report 7780860-7 (Version None)
Quarter: 2011Q3

REPORT INFORMATION
  Report Type: 
  Country: None (occurrence: None)
  Receive Date: 20110927
  Receipt Date: 20110919
  Transmission Date: 20111222
  Serious: Yes (Other)
  Sender: FDA-Public Use
  Company Number: US-BAYER-200939575NA

PATIENT
  Age: 68 Year
  Sex: Male
  Weight: 79 kg

DRUGS (28)
  1. VANCOMYCIN [Concomitant]
     Dosage: 1 G, UNK
     Route: 042
     Dates: start: 20070522
  2. TRIDIL [Concomitant]
     Dosage: UNK
     Route: 022
     Dates: start: 20070522, end: 20070522
  3. VERSED [Concomitant]
     Dosage: UNK
     Dates: start: 20070529
  4. FENTANYL [Concomitant]
     Dosage: UNK
     Dates: start: 20070529
  5. TRASYLOL [Suspect]
     Indication: AORTIC SURGERY
     Dosage: 1 ML, ONCE
     Route: 042
     Dates: start: 20070529, end: 20070529
  6. VANCOMYCIN [Concomitant]
     Dosage: 1 G
     Dates: start: 20070529
  7. HEPARIN [Concomitant]
     Dosage: 3360
     Dates: start: 20070529
  8. VECURONIUM BROMIDE [Concomitant]
     Dosage: 5 MG, UNK
     Dates: start: 20070529
  9. HEPARIN [Concomitant]
     Dosage: UNK
     Route: 042
     Dates: start: 20070522, end: 20070522
  10. OPTIRAY 160 [Concomitant]
     Indication: CATHETERISATION CARDIAC
     Dosage: 100 ML, UNK
     Route: 042
     Dates: start: 20070522, end: 20070522
  11. SOLU-CORTEF [Concomitant]
     Dosage: 100 MG, UNK
     Route: 042
     Dates: start: 20070522, end: 20070522
  12. TRASYLOL [Suspect]
     Dosage: 25 ML/HOUR, INFUSION
     Route: 042
     Dates: start: 20070529, end: 20070529
  13. ESMOLOL HCL [Concomitant]
     Dosage: 50 MG, UNK
     Route: 042
     Dates: start: 20070522, end: 20070522
  14. ISOFLURANE [Concomitant]
     Dosage: UNK, INHALED
     Dates: start: 20070529
  15. PROPOFOL [Concomitant]
     Dosage: UNK
     Dates: start: 20070529
  16. PLATELETS [Concomitant]
     Dosage: 16
     Route: 042
     Dates: start: 20070529
  17. TOPROL-XL [Concomitant]
     Dosage: 50 MG, QD
     Route: 048
  18. METOPROLOL TARTRATE [Concomitant]
     Dosage: 5 MG, UNK
     Route: 042
     Dates: start: 20070522, end: 20070522
  19. PHENYLEPHRINE HCL [Concomitant]
     Dosage: 200 MCGT
  20. CADUET [Concomitant]
     Dosage: 5/40 MG, QD
     Route: 048
  21. MANNITOL [Concomitant]
     Dosage: 25 G, UNK
     Dates: start: 20070529
  22. FRESH FROZEN PLASMA [Concomitant]
     Dosage: 4 U, UNK
     Route: 042
  23. TRASYLOL [Suspect]
     Indication: CORONARY ARTERY BYPASS
     Dosage: 100 ML OF LOADING DOSE
     Route: 042
     Dates: start: 20070529, end: 20070529
  24. LIPITOR [Concomitant]
     Dosage: 40 MG, QD
     Route: 048
  25. DIGOXIN [Concomitant]
     Dosage: 0.25 MG, QD
     Route: 048
  26. ASPIRIN [Concomitant]
     Dosage: 325 MG, QD
  27. EPINEPHRINE [Concomitant]
     Dosage: UNK
     Dates: start: 20070529
  28. RED BLOOD CELLS [Concomitant]
     Dosage: 3 U, UNK
     Route: 042
     Dates: start: 20070529

REACTIONS (5)
  - RENAL FAILURE [None]
  - PAIN [None]
  - RENAL FAILURE ACUTE [None]
  - INJURY [None]
  - UNEVALUABLE EVENT [None]
